FAERS Safety Report 25551742 (Version 1)
Quarter: 2025Q3

REPORT INFORMATION
  Report Type: Spontaneous
  Country: US (occurrence: None)
  Receive Date: 20250714
  Receipt Date: 20250714
  Transmission Date: 20251021
  Serious: No
  Sender: FDA-CTU
  Company Number: None

PATIENT
  Age: 70 Year
  Sex: Female
  Weight: 62.1 kg

DRUGS (1)
  1. TECVAYLI [Suspect]
     Active Substance: TECLISTAMAB-CQYV
     Indication: Plasma cell myeloma
     Dates: start: 20250507, end: 20250625

REACTIONS (11)
  - Diarrhoea [None]
  - Fatigue [None]
  - Hypersomnia [None]
  - Abdominal pain [None]
  - Abdominal discomfort [None]
  - Chills [None]
  - Feeling hot [None]
  - Decreased appetite [None]
  - Weight decreased [None]
  - Hunger [None]
  - Tremor [None]

NARRATIVE: CASE EVENT DATE: 20250610
